FAERS Safety Report 16822205 (Version 1)
Quarter: 2019Q3

REPORT INFORMATION
  Report Type: Spontaneous
  Country: US (occurrence: US)
  Receive Date: 20190726
  Receipt Date: 20190726
  Transmission Date: 20191005
  Serious: Yes (Hospitalization)
  Sender: FDA-Public Use
  Company Number: None

PATIENT
  Age: 85 Year
  Sex: Male
  Weight: 74.84 kg

DRUGS (1)
  1. APIXABAN [Suspect]
     Active Substance: APIXABAN
     Indication: ATRIAL FIBRILLATION
     Route: 048
     Dates: start: 20170323

REACTIONS (12)
  - Cough [None]
  - Gastrointestinal haemorrhage [None]
  - Haemoptysis [None]
  - Gastrointestinal mucosal disorder [None]
  - Melaena [None]
  - Hiatus hernia [None]
  - Gastritis [None]
  - Oesophageal stenosis [None]
  - Occult blood positive [None]
  - Blood pressure decreased [None]
  - Pneumonia [None]
  - Troponin increased [None]

NARRATIVE: CASE EVENT DATE: 20190319
